FAERS Safety Report 5171503-X (Version None)
Quarter: 2006Q4

REPORT INFORMATION
  Report Type: 
  Country: None (occurrence: None)
  Receive Date: 20061213
  Receipt Date: 20060921
  Transmission Date: 20070319
  Serious: Yes (Hospitalization)
  Sender: FDA-Public Use
  Company Number: US-AMGEN-US194441

PATIENT
  Sex: Female

DRUGS (1)
  1. ENBREL [Suspect]
     Indication: PSORIATIC ARTHROPATHY
     Route: 058
     Dates: start: 20030101

REACTIONS (11)
  - ANKLE OPERATION [None]
  - ANXIETY [None]
  - CONDITION AGGRAVATED [None]
  - FEELING JITTERY [None]
  - HERPES ZOSTER [None]
  - INJECTION SITE ERYTHEMA [None]
  - INJECTION SITE PRURITUS [None]
  - MIDDLE INSOMNIA [None]
  - PNEUMONIA [None]
  - PSORIATIC ARTHROPATHY [None]
  - SLEEP DISORDER [None]
